FAERS Safety Report 21563860 (Version 1)
Quarter: 2022Q4

REPORT INFORMATION
  Report Type: Spontaneous
  Country: CA (occurrence: CA)
  Receive Date: 20221108
  Receipt Date: 20221108
  Transmission Date: 20230113
  Serious: Yes (Life-Threatening, Other)
  Sender: FDA-Public Use
  Company Number: CA-SA-SAC20221104000090

PATIENT
  Age: 67 Year
  Sex: Female

DRUGS (3)
  1. LANTUS [Suspect]
     Active Substance: INSULIN GLARGINE
     Dosage: 30DOSES(0.6MG)
     Route: 058
  2. JARDIANCE [Suspect]
     Active Substance: EMPAGLIFLOZIN
     Dosage: 15DOSES(1.2MG)
  3. VICTOZA [Suspect]
     Active Substance: LIRAGLUTIDE
     Dosage: 10DOSES(1.8MG)

REACTIONS (1)
  - Neoplasm malignant [Not Recovered/Not Resolved]
